FAERS Safety Report 11760094 (Version 1)
Quarter: 2015Q4

REPORT INFORMATION
  Report Type: Spontaneous
  Country: CN (occurrence: CN)
  Receive Date: 20151120
  Receipt Date: 20151120
  Transmission Date: 20160304
  Serious: Yes (Hospitalization)
  Sender: FDA-Public Use
  Company Number: CN-CORCEPT THERAPEUTICS INC.-CN-2015CRT000742

PATIENT
  Age: 41 Year
  Sex: Female

DRUGS (3)
  1. MIFEPRISTONE [Suspect]
     Active Substance: MIFEPRISTONE
     Indication: ABORTION INDUCED
     Dosage: 50 MG, BID
     Route: 048
  2. MISOPROSTOL. [Suspect]
     Active Substance: MISOPROSTOL
     Indication: ABORTION INDUCED
     Dosage: 600 ?G, 26 TO 48 HOURS AFTER RECEIVING MIFEPRISTONE
     Route: 048
  3. MISOPROSTOL. [Suspect]
     Active Substance: MISOPROSTOL
     Dosage: 200 ?G, EVERY THREE HOURS TO A TOTAL DOSE OF 1800 MCG DAILY
     Route: 067

REACTIONS (1)
  - Uterine rupture [Recovered/Resolved]
